FAERS Safety Report 24048642 (Version 1)
Quarter: 2024Q3

REPORT INFORMATION
  Report Type: Spontaneous
  Country: US (occurrence: US)
  Receive Date: 20240704
  Receipt Date: 20240704
  Transmission Date: 20241016
  Serious: No
  Sender: ROCHE
  Company Number: US-ROCHE-10000015219

PATIENT
  Age: 52 Year
  Sex: Female

DRUGS (3)
  1. BEVACIZUMAB [Suspect]
     Active Substance: BEVACIZUMAB
     Indication: Vulval cancer metastatic
     Route: 065
  2. CISPLATIN [Concomitant]
     Active Substance: CISPLATIN
  3. PACLITAXEL [Concomitant]
     Active Substance: PACLITAXEL

REACTIONS (2)
  - Off label use [Unknown]
  - No adverse event [Unknown]
